FAERS Safety Report 8931823 (Version 1)
Quarter: 2012Q4

REPORT INFORMATION
  Report Type: 
  Country: US (occurrence: US)
  Receive Date: 20121128
  Receipt Date: 20121128
  Transmission Date: 20130627
  Serious: Yes (Other)
  Sender: FDA-Public Use
  Company Number: US-ELI_LILLY_AND_COMPANY-US201211005308

PATIENT
  Sex: Male

DRUGS (2)
  1. AXIRON [Suspect]
     Dosage: 60 mg, qd
     Dates: start: 20121106
  2. CHEMOTHERAPEUTICS [Concomitant]

REACTIONS (1)
  - Neutrophil count decreased [Unknown]
